FAERS Safety Report 10256438 (Version 1)
Quarter: 2014Q2

REPORT INFORMATION
  Report Type: Spontaneous
  Country: US (occurrence: US)
  Receive Date: 20140624
  Receipt Date: 20140624
  Transmission Date: 20141212
  Serious: No
  Sender: FDA-Public Use
  Company Number: US-ZOGENIX, INC.-2012ZX000191

PATIENT
  Age: 47 Year
  Sex: Female
  Weight: 53.12 kg

DRUGS (6)
  1. SUMAVEL DOSEPRO [Suspect]
     Indication: MIGRAINE
     Dates: start: 201112, end: 201112
  2. SUMAVEL DOSEPRO [Suspect]
     Dates: start: 201202, end: 201202
  3. LYRICA [Concomitant]
     Indication: HEADACHE
  4. DOXEPIN [Concomitant]
     Indication: PRODUCT USED FOR UNKNOWN INDICATION
  5. OMEPRAZOLE [Concomitant]
     Indication: PRODUCT USED FOR UNKNOWN INDICATION
  6. RANITIDINE [Concomitant]
     Indication: ULCER

REACTIONS (3)
  - Injection site laceration [Recovered/Resolved]
  - Device malfunction [Recovered/Resolved]
  - Accidental exposure to product [Recovered/Resolved]
